FAERS Safety Report 5699681-4 (Version None)
Quarter: 2008Q2

REPORT INFORMATION
  Report Type: 
  Country: None (occurrence: None)
  Receive Date: 20080410
  Receipt Date: 20080404
  Transmission Date: 20081010
  Serious: Yes (Hospitalization, Other)
  Sender: FDA-Public Use
  Company Number: PHEH2007US07706

PATIENT
  Age: 50 Year
  Sex: Female
  Weight: 117 kg

DRUGS (6)
  1. CYCRIN [Suspect]
     Indication: MENOPAUSE
     Dosage: 10MG UNK
     Dates: start: 19820101, end: 20000101
  2. ZOLOFT [Concomitant]
     Indication: DEPRESSION
     Dosage: 50MG UNK
  3. PHENTERMINE [Concomitant]
     Dosage: 20 UNK, UNK
     Dates: start: 19970404
  4. PONDIMIN [Concomitant]
     Dosage: 30 UNK, UNK
     Dates: start: 19970404
  5. ESTRADERM [Suspect]
     Indication: MENOPAUSE
     Dosage: 0.1MG UNK
     Route: 061
     Dates: start: 19820101, end: 20000101
  6. NOLVADEX [Concomitant]

REACTIONS (22)
  - ABASIA [None]
  - ANKLE FRACTURE [None]
  - ARRHYTHMIA [None]
  - BREAST CALCIFICATIONS [None]
  - BREAST CANCER IN SITU [None]
  - BREAST CYST [None]
  - BREAST FIBROSIS [None]
  - BREAST INFLAMMATION [None]
  - BREAST MASS [None]
  - BREAST OEDEMA [None]
  - CARDIAC MURMUR [None]
  - CARDIOMEGALY [None]
  - CONTUSION [None]
  - DIASTOLIC DYSFUNCTION [None]
  - HYPOTHYROIDISM [None]
  - LYMPHOEDEMA [None]
  - MALIGNANT BREAST LUMP REMOVAL [None]
  - PULMONARY HYPERTENSION [None]
  - RADIOTHERAPY [None]
  - RIB FRACTURE [None]
  - ROAD TRAFFIC ACCIDENT [None]
  - TRICUSPID VALVE INCOMPETENCE [None]
